FAERS Safety Report 9412276 (Version 1)
Quarter: 2013Q3

REPORT INFORMATION
  Report Type: Spontaneous
  Country: US (occurrence: None)
  Receive Date: 20130719
  Receipt Date: 20130719
  Transmission Date: 20140515
  Serious: Yes (Life-Threatening, Hospitalization, Disabling)
  Sender: FDA-Public Use
  Company Number: None

PATIENT
  Age: 69 None
  Sex: Female
  Weight: 63.5 kg

DRUGS (1)
  1. V-VACITAL (ADREDIOBLONG) [Suspect]
     Indication: DEPRESSION
     Route: 048
     Dates: start: 200305, end: 200606

REACTIONS (18)
  - Weight decreased [None]
  - Fatigue [None]
  - Dehydration [None]
  - Hypersomnia [None]
  - Anhedonia [None]
  - Hallucination, visual [None]
  - Poor personal hygiene [None]
  - Hypophagia [None]
  - Impaired driving ability [None]
  - Amnesia [None]
  - Dermal cyst [None]
  - Urinary tract infection [None]
  - Hair colour changes [None]
  - Blood pressure increased [None]
  - Feeling jittery [None]
  - Skin exfoliation [None]
  - Blood potassium decreased [None]
  - Blood electrolytes decreased [None]
